FAERS Safety Report 7002913 (Version 1)
Quarter: 2020Q3

REPORT INFORMATION
  Report Type: Report from Study
  Country: US (occurrence: US)
  Receive Date: 20090527
  Receipt Date: 20090527
  Transmission Date: 20201105
  Serious: Yes (Other)
  Sender: FDA-Public Use
  Company Number: US-ROCHE-634320

PATIENT
  Age: 75 Year
  Sex: Female

DRUGS (1)
  1. IBANDRONIC ACID. [Suspect]
     Active Substance: IBANDRONIC ACID
     Indication: BONE DISORDER
     Route: 048
     Dates: start: 200805

REACTIONS (1)
  - Fracture delayed union [Unknown]
